FAERS Safety Report 5013386-4 (Version None)
Quarter: 2006Q2

REPORT INFORMATION
  Report Type: 
  Country: None (occurrence: None)
  Receive Date: 20060530
  Receipt Date: 20060426
  Transmission Date: 20061013
  Serious: No
  Sender: FDA-Public Use
  Company Number: US-GLAXOSMITHKLINE-A0603396A

PATIENT
  Age: 55 Year
  Sex: Female

DRUGS (8)
  1. WELLBUTRIN XL [Suspect]
     Indication: DEPRESSION
     Dosage: 150MG PER DAY
     Route: 048
     Dates: start: 20060426
  2. ZOLOFT [Concomitant]
  3. ALPRAZOLAM [Concomitant]
  4. MONOPRIL [Concomitant]
  5. NABUMETONE [Concomitant]
  6. ISONIAZID [Concomitant]
  7. FOLIC [Concomitant]
  8. HUMIRA [Concomitant]

REACTIONS (1)
  - WRONG TECHNIQUE IN DRUG USAGE PROCESS [None]
